FAERS Safety Report 18036854 (Version 2)
Quarter: 2020Q3

REPORT INFORMATION
  Report Type: Spontaneous
  Country: JP (occurrence: JP)
  Receive Date: 20200717
  Receipt Date: 20200820
  Transmission Date: 20201103
  Serious: Yes (Death, Other)
  Sender: FDA-Public Use
  Company Number: JP-PFIZER INC-2020273774

PATIENT
  Age: 65 Year
  Sex: Male
  Weight: 103.6 kg

DRUGS (14)
  1. BOSULIF [Suspect]
     Active Substance: BOSUTINIB MONOHYDRATE
     Indication: CHRONIC MYELOID LEUKAEMIA
     Dosage: 100 MG, 1X/DAY
     Route: 048
     Dates: start: 20171109
  2. BAYASPIRIN [Concomitant]
     Active Substance: ASPIRIN
     Dosage: 100 MG, 1X/DAY (AFTER BREAKFAST)
     Route: 048
  3. LUPRAC [Concomitant]
     Active Substance: TORSEMIDE
     Dosage: 8 MG, 1X/DAY (AFTER BREAKFAST)
     Route: 048
  4. EPADEL?S [Concomitant]
     Active Substance: ICOSAPENT ETHYL
     Dosage: 900 MG, 2X/DAY (AFTER BREAKFAST AND SUPPER)
     Route: 048
  5. SELARA [Concomitant]
     Active Substance: EPLERENONE
     Dosage: 50 MG, 1X/DAY (AFTER BREAKFAST)
     Route: 048
  6. LIPITOR [Concomitant]
     Active Substance: ATORVASTATIN CALCIUM
     Dosage: 10 MG, 1X/DAY (AFTER BREAKFAST)
     Route: 048
  7. ZANTAC [Concomitant]
     Active Substance: RANITIDINE HYDROCHLORIDE
     Dosage: 75 MG, 2X/DAY (AFTER BREAKFAST AND SUPPER)
     Route: 048
  8. FLUNASE [FLUTICASONE PROPIONATE] [Concomitant]
     Dosage: UNK, 2X/DAY
     Route: 045
  9. AZOSEMIDE [Concomitant]
     Active Substance: AZOSEMIDE
     Dosage: 30 MG, 1X/DAY (AFTER LUNCH)
     Route: 048
  10. ARTIST [Concomitant]
     Active Substance: CARVEDILOL
     Dosage: 2.5 MG, 2X/DAY (AFTER BREAKFAST AND SUPPER)
     Route: 048
  11. FEBURIC [Concomitant]
     Active Substance: FEBUXOSTAT
     Dosage: 20 MG, 1X/DAY (AFTER BREAKFAST)
     Route: 048
  12. MAGNESIUM OXIDE. [Concomitant]
     Active Substance: MAGNESIUM OXIDE
     Dosage: 330 MG, 3X/DAY (AFTER EACH MEALS)
     Route: 048
  13. NU?LOTAN [Concomitant]
     Active Substance: LOSARTAN POTASSIUM
     Dosage: 25 MG, 1X/DAY (AFTER BREAKFAST)
     Route: 048
  14. TRAMAZOLINE [TRAMAZOLINE HYDROCHLORIDE] [Concomitant]
     Indication: NASAL CONGESTION
     Dosage: UNK, AS NEEDED
     Route: 045

REACTIONS (4)
  - Cardio-respiratory arrest [Fatal]
  - Myocardial infarction [Fatal]
  - Cardiac disorder [Fatal]
  - Cardiac failure [Fatal]

NARRATIVE: CASE EVENT DATE: 20200312
